FAERS Safety Report 21497019 (Version 1)
Quarter: 2022Q4

REPORT INFORMATION
  Report Type: Spontaneous
  Country: US (occurrence: US)
  Receive Date: 20221023
  Receipt Date: 20221023
  Transmission Date: 20230113
  Serious: Yes (Life-Threatening, Hospitalization, Other)
  Sender: FDA-Public Use
  Company Number: US-BAXTER-2022BAX022142

PATIENT
  Age: 60 Year
  Sex: Female

DRUGS (16)
  1. IFOSFAMIDE [Suspect]
     Active Substance: IFOSFAMIDE
     Indication: Diffuse large B-cell lymphoma
     Dosage: SALVAGE CHEMOTHERAPY (RICE)
     Route: 065
  2. DOXORUBICIN [Suspect]
     Active Substance: DOXORUBICIN
     Indication: Diffuse large B-cell lymphoma
     Dosage: ONE CYCLE OF R-CHOP
     Route: 065
  3. DOXORUBICIN [Suspect]
     Active Substance: DOXORUBICIN
     Dosage: 5 CYCLES OF EPOCH-R
     Route: 065
  4. CYCLOPHOSPHAMIDE [Suspect]
     Active Substance: CYCLOPHOSPHAMIDE
     Indication: Diffuse large B-cell lymphoma
     Dosage: ONE CYCLE OF R-CHOP
     Route: 065
  5. CYCLOPHOSPHAMIDE [Suspect]
     Active Substance: CYCLOPHOSPHAMIDE
     Dosage: 5 CYCLES OF EPOCH-R
     Route: 065
  6. ETOPOSIDE [Suspect]
     Active Substance: ETOPOSIDE
     Indication: Diffuse large B-cell lymphoma
     Dosage: SALVAGE CHEMOTHERAPY (RICE)
     Route: 065
  7. ETOPOSIDE [Suspect]
     Active Substance: ETOPOSIDE
     Dosage: 5 CYCLES OF EPOCH-R
     Route: 065
  8. RITUXIMAB [Suspect]
     Active Substance: RITUXIMAB
     Indication: Diffuse large B-cell lymphoma
     Dosage: FIRST DAY, SALVAGE CHEMOTHERAPY (RICE)
     Route: 065
  9. RITUXIMAB [Suspect]
     Active Substance: RITUXIMAB
     Dosage: ONE CYCLE OF R-CHOP
     Route: 065
  10. RITUXIMAB [Suspect]
     Active Substance: RITUXIMAB
     Dosage: 5 CYCLES OF EPOCH-R
     Route: 065
  11. CARBOPLATIN [Suspect]
     Active Substance: CARBOPLATIN
     Indication: Diffuse large B-cell lymphoma
     Dosage: SALVAGE CHEMOTHERAPY (RICE)
     Route: 065
  12. PREDNISONE [Suspect]
     Active Substance: PREDNISONE
     Indication: Diffuse large B-cell lymphoma
     Dosage: ONE CYCLE OF R-CHOP
     Route: 065
  13. PREDNISONE [Suspect]
     Active Substance: PREDNISONE
     Dosage: 5-CYCLES OF EPOCH-R
     Route: 065
  14. VINCRISTINE [Suspect]
     Active Substance: VINCRISTINE
     Indication: Diffuse large B-cell lymphoma
     Dosage: ONE CYCLE OF R-CHOP
     Route: 065
  15. VINCRISTINE SULFATE [Suspect]
     Active Substance: VINCRISTINE SULFATE
     Indication: Diffuse large B-cell lymphoma
     Dosage: 5 CYCLES OF EPOCH-R
     Route: 065
  16. RASBURICASE [Concomitant]
     Active Substance: RASBURICASE
     Indication: Blood uric acid increased
     Dosage: ONE DOSE WITH URIC ACID LEVEL OF 8.1
     Route: 065

REACTIONS (5)
  - Haemodynamic instability [Unknown]
  - Bradycardia [Unknown]
  - Heart rate decreased [Unknown]
  - Encephalopathy [Unknown]
  - Tumour lysis syndrome [Unknown]
